FAERS Safety Report 6086696-X (Version None)
Quarter: 2009Q1

REPORT INFORMATION
  Report Type: 
  Country: None (occurrence: None)
  Receive Date: 20090211
  Receipt Date: 20090127
  Transmission Date: 20090719
  Serious: Yes (Other)
  Sender: FDA-Public Use
  Company Number: CHPA2009US01661

PATIENT
  Age: 23 Year
  Sex: Female

DRUGS (2)
  1. 4 WAY FAST ACTING NASAL SPRAY (NCH) (PHENYLEPHRINE) NASAL SRAPY [Suspect]
     Indication: NASAL CONGESTION
     Dosage: Q2H, NASAL
     Route: 045
     Dates: start: 20090101
  2. 4 WAY FAST ACTING NASAL SPRAY (NCH) (PHENYLEPHRINE) NASAL SRAPY [Suspect]
     Indication: NASOPHARYNGITIS
     Dosage: Q2H, NASAL
     Route: 045
     Dates: start: 20090101

REACTIONS (11)
  - ANOSMIA [None]
  - CONDITION AGGRAVATED [None]
  - DEPENDENCE [None]
  - DRUG EXPOSURE DURING PREGNANCY [None]
  - DYSPNOEA [None]
  - INAPPROPRIATE SCHEDULE OF DRUG ADMINISTRATION [None]
  - INTENTIONAL DRUG MISUSE [None]
  - MIDDLE INSOMNIA [None]
  - NASAL CONGESTION [None]
  - SINUS HEADACHE [None]
  - SLEEP DISORDER [None]
